FAERS Safety Report 20860331 (Version 6)
Quarter: 2023Q2

REPORT INFORMATION
  Report Type: Report from Study
  Country: CA (occurrence: CA)
  Receive Date: 20220523
  Receipt Date: 20230523
  Transmission Date: 20230722
  Serious: Yes (Other)
  Sender: FDA-Public Use
  Company Number: CA-TAKEDA-2022TUS020286

PATIENT
  Age: 57 Year
  Sex: Female
  Weight: 62 kg

DRUGS (6)
  1. IXAZOMIB [Suspect]
     Active Substance: IXAZOMIB
     Indication: Plasma cell myeloma
     Dosage: 4 MILLIGRAM, 1/WEEK
     Route: 048
     Dates: start: 20220322
  2. REVLIMID [Suspect]
     Active Substance: LENALIDOMIDE
     Indication: Plasma cell myeloma
     Dosage: UNK
     Route: 065
     Dates: start: 20220322
  3. DEXAMETHASONE [Concomitant]
     Active Substance: DEXAMETHASONE
     Indication: Plasma cell myeloma
     Dosage: 4 MILLIGRAM
     Route: 065
     Dates: start: 201811
  4. VITAMIN B12 [Concomitant]
     Active Substance: CYANOCOBALAMIN
     Dosage: UNK
     Route: 065
  5. VITAMIN D [Concomitant]
     Active Substance: VITAMIN D NOS
     Dosage: UNK
     Route: 065
  6. DARATUMUMAB [Concomitant]
     Active Substance: DARATUMUMAB
     Dosage: UNK
     Route: 065

REACTIONS (11)
  - Haematochezia [Unknown]
  - Abdominal discomfort [Unknown]
  - Oropharyngeal pain [Unknown]
  - Fatigue [Unknown]
  - Muscle spasms [Recovered/Resolved with Sequelae]
  - Cough [Unknown]
  - Nasopharyngitis [Unknown]
  - Pyrexia [Unknown]
  - Vomiting [Unknown]
  - Nausea [Unknown]
  - Off label use [Unknown]

NARRATIVE: CASE EVENT DATE: 20220322
